FAERS Safety Report 17607832 (Version 5)
Quarter: 2020Q3

REPORT INFORMATION
  Report Type: Spontaneous
  Country: CN (occurrence: CN)
  Receive Date: 20200331
  Receipt Date: 20200622
  Transmission Date: 20201105
  Serious: Yes (Hospitalization)
  Sender: FDA-Public Use
  Company Number: CN-CELGENEUS-CHN-20200309377

PATIENT
  Age: 70 Year
  Sex: Male
  Weight: 48 kg

DRUGS (23)
  1. ABRAXANE [Suspect]
     Active Substance: PACLITAXEL
     Dosage: 106 MILLIGRAM
     Route: 041
     Dates: start: 20200229, end: 20200229
  2. CARBOPLATIN. [Suspect]
     Active Substance: CARBOPLATIN
     Indication: NON-SMALL CELL LUNG CANCER
     Dosage: 387 MILLIGRAM
     Route: 041
     Dates: start: 20191125, end: 20191125
  3. SERPLULIMAB. [Suspect]
     Active Substance: SERPLULIMAB
     Route: 041
     Dates: start: 20200515, end: 20200605
  4. ABRAXANE [Suspect]
     Active Substance: PACLITAXEL
     Dosage: 107 MILLIGRAM
     Route: 041
     Dates: start: 20200109, end: 20200109
  5. MEGESTROL [Concomitant]
     Active Substance: MEGESTROL
     Indication: DECREASED APPETITE
     Dosage: 160 MILLIGRAM
     Route: 048
     Dates: start: 20200308, end: 20200314
  6. DOXOFYLLINE [Concomitant]
     Active Substance: DOXOFYLLINE
     Indication: DYSPNOEA
     Dosage: .4 GRAM
     Route: 048
     Dates: start: 20200308, end: 20200314
  7. ABRAXANE [Suspect]
     Active Substance: PACLITAXEL
     Dosage: 106 MILLIGRAM
     Route: 041
     Dates: start: 20200229, end: 20200229
  8. ABRAXANE [Suspect]
     Active Substance: PACLITAXEL
     Dosage: 138 MILLIGRAM
     Route: 041
     Dates: start: 20191217, end: 20191217
  9. CARBOPLATIN. [Suspect]
     Active Substance: CARBOPLATIN
     Dosage: 457 MILLIGRAM
     Route: 041
     Dates: start: 20191217, end: 20191217
  10. CARBOPLATIN. [Suspect]
     Active Substance: CARBOPLATIN
     Dosage: 318 MILLIGRAM
     Route: 041
     Dates: start: 20200222, end: 20200222
  11. ABRAXANE [Suspect]
     Active Substance: PACLITAXEL
     Indication: NON-SMALL CELL LUNG CANCER
     Dosage: 133 MILLIGRAM
     Route: 041
     Dates: start: 20191125, end: 20200116
  12. ABRAXANE [Suspect]
     Active Substance: PACLITAXEL
     Dosage: 138 MILLIGRAM
     Route: 041
     Dates: start: 20191224, end: 20191224
  13. ABRAXANE [Suspect]
     Active Substance: PACLITAXEL
     Dosage: 108 MILLIGRAM
     Route: 041
     Dates: start: 20200222, end: 20200222
  14. ABRAXANE [Suspect]
     Active Substance: PACLITAXEL
     Dosage: 107 MILLIGRAM
     Route: 041
     Dates: start: 20200307, end: 20200307
  15. ABRAXANE [Suspect]
     Active Substance: PACLITAXEL
     Dosage: 134 MILLIGRAM
     Route: 041
     Dates: start: 20191202, end: 20191202
  16. SERPLULIMAB. [Suspect]
     Active Substance: SERPLULIMAB
     Dosage: 182 MILLIGRAM
     Route: 041
     Dates: start: 20191217, end: 20191217
  17. SERPLULIMAB. [Suspect]
     Active Substance: SERPLULIMAB
     Dosage: 216 MILLIGRAM
     Route: 041
     Dates: start: 20200109, end: 20200109
  18. SERPLULIMAB. [Suspect]
     Active Substance: SERPLULIMAB
     Dosage: 216 MILLIGRAM
     Route: 041
     Dates: start: 20200222, end: 20200222
  19. ABRAXANE [Suspect]
     Active Substance: PACLITAXEL
     Dosage: 105 MILLIGRAM
     Route: 041
     Dates: start: 20200116, end: 20200116
  20. CARBOPLATIN. [Suspect]
     Active Substance: CARBOPLATIN
     Dosage: 335 MILLIGRAM
     Route: 041
     Dates: start: 20200109, end: 20200109
  21. SERPLULIMAB. [Suspect]
     Active Substance: SERPLULIMAB
     Indication: NON-SMALL CELL LUNG CANCER
     Dosage: 183 MILLIGRAM
     Route: 041
     Dates: start: 20191125, end: 20191125
  22. EBASTINE [Concomitant]
     Active Substance: EBASTINE
     Indication: OBSTRUCTIVE AIRWAYS DISORDER
     Dosage: 10 MILLIGRAM
     Route: 048
     Dates: start: 20200308, end: 20200314
  23. BATILOL. [Concomitant]
     Active Substance: BATILOL
     Indication: LEUKOPENIA
     Dosage: 10 MILLIGRAM
     Route: 048
     Dates: start: 20200308, end: 20200314

REACTIONS (3)
  - Cor pulmonale chronic [Recovering/Resolving]
  - Chronic obstructive pulmonary disease [Recovering/Resolving]
  - Pneumonia [Recovering/Resolving]

NARRATIVE: CASE EVENT DATE: 20200318
